FAERS Safety Report 7907076-5 (Version None)
Quarter: 2011Q4

REPORT INFORMATION
  Report Type: 
  Country: None (occurrence: None)
  Receive Date: 20111110
  Receipt Date: 20111103
  Transmission Date: 20120403
  Serious: Yes (Other)
  Sender: FDA-Public Use
  Company Number: CA-GILEAD-2011-0044705

PATIENT
  Sex: Male

DRUGS (14)
  1. ALLOPURINOL [Concomitant]
     Dosage: UNK MG, UNK
     Route: 048
  2. DOXEPIN [Concomitant]
  3. FUROSEMIDE [Concomitant]
  4. ASPIRIN [Concomitant]
     Dosage: UNK MG, UNK
  5. LOVAZA [Concomitant]
  6. INDAPAMIDE [Concomitant]
  7. AMBRISENTAN [Suspect]
     Indication: PULMONARY ARTERIAL HYPERTENSION
     Dosage: 2.5MG PER DAY
     Route: 048
     Dates: start: 20110909
  8. ASPIRIN [Concomitant]
  9. ATORVASTATIN [Concomitant]
  10. MULTIVITAMINS, COMBINATIONS [Concomitant]
  11. MAGNESIUM [Concomitant]
  12. CALCIUM [Concomitant]
  13. EZETIMIBE [Concomitant]
  14. PANTOLOC                           /01263202/ [Concomitant]

REACTIONS (2)
  - LOSS OF CONSCIOUSNESS [None]
  - LIVER FUNCTION TEST ABNORMAL [None]
